FAERS Safety Report 8539815-7 (Version None)
Quarter: 2012Q2

REPORT INFORMATION
  Report Type: 
  Country: None (occurrence: None)
  Receive Date: 20120412
  Receipt Date: 20090421
  Transmission Date: 20120825
  Serious: Yes (Other)
  Sender: FDA-Public Use
  Company Number: PHEH2009US03980

PATIENT
  Age: 46 Year
  Sex: Male

DRUGS (2)
  1. CLOZARIL [Suspect]
     Indication: SCHIZOPHRENIA
     Dosage: 12.5, QD, ORAL ; 12.5 MG, BID
     Route: 048
     Dates: start: 20090407, end: 20090401
  2. CLOZARIL [Suspect]
     Indication: SCHIZOPHRENIA
     Dosage: 12.5, QD, ORAL ; 12.5 MG, BID
     Route: 048
     Dates: start: 20090401, end: 20090414

REACTIONS (1)
  - NEUTROPHIL COUNT DECREASED [None]
